FAERS Safety Report 18187573 (Version 4)
Quarter: 2020Q4

REPORT INFORMATION
  Report Type: Spontaneous
  Country: US (occurrence: US)
  Receive Date: 20200824
  Receipt Date: 20201001
  Transmission Date: 20210113
  Serious: Yes (Other)
  Sender: FDA-Public Use
  Company Number: US-SA-2020SA218380

PATIENT

DRUGS (3)
  1. LANTUS [Suspect]
     Active Substance: INSULIN GLARGINE
     Indication: TYPE 2 DIABETES MELLITUS
     Dosage: 24 IU, QD
     Dates: start: 202008
  2. LANTUS [Suspect]
     Active Substance: INSULIN GLARGINE
     Dosage: NOT GETTING FULL DOSE
     Route: 065
  3. METFORMIN [Concomitant]
     Active Substance: METFORMIN HYDROCHLORIDE
     Dosage: 850 MG, BID
     Route: 065

REACTIONS (5)
  - Device operational issue [Unknown]
  - Diabetes mellitus inadequate control [Unknown]
  - Needle issue [Unknown]
  - Incorrect dose administered by device [Unknown]
  - Intentional product misuse [Unknown]

NARRATIVE: CASE EVENT DATE: 202008
